FAERS Safety Report 6938417-3 (Version None)
Quarter: 2010Q3

REPORT INFORMATION
  Report Type: 
  Country: None (occurrence: None)
  Receive Date: 20100824
  Receipt Date: 20100713
  Transmission Date: 20110219
  Serious: Yes (Life-Threatening, Hospitalization)
  Sender: FDA-Public Use
  Company Number: JP-BAYER-200811130BYL

PATIENT
  Age: 71 Year
  Sex: Male
  Weight: 33 kg

DRUGS (9)
  1. NEXAVAR [Suspect]
     Indication: RENAL CELL CARCINOMA
     Dosage: TOTAL DAILY DOSE: 800 MG  UNIT DOSE: 200 MG
     Route: 048
     Dates: start: 20080508, end: 20080605
  2. NEXAVAR [Suspect]
     Dosage: UNIT DOSE: 200 MG
     Route: 048
     Dates: start: 20080925, end: 20090402
  3. NEXAVAR [Suspect]
     Dosage: TOTAL DAILY DOSE: 400 MG  UNIT DOSE: 200 MG
     Route: 048
     Dates: start: 20090410, end: 20090617
  4. LENDORMIN [Concomitant]
     Indication: INSOMNIA
     Route: 048
  5. ASVERIN [Concomitant]
     Route: 048
  6. GASTER D [Concomitant]
     Indication: GASTRIC ULCER
     Route: 048
  7. DECADRON [Concomitant]
     Indication: TUMOUR ASSOCIATED FEVER
     Route: 048
  8. VOLTAREN SUPPO [Concomitant]
     Indication: TUMOUR ASSOCIATED FEVER
     Route: 054
  9. MAGNESIUM OXIDE [Concomitant]
     Route: 048

REACTIONS (6)
  - DYSPHONIA [None]
  - LIPASE INCREASED [None]
  - LUNG ABSCESS [None]
  - PALMAR-PLANTAR ERYTHRODYSAESTHESIA SYNDROME [None]
  - PNEUMONIA [None]
  - SEPTIC SHOCK [None]
